FAERS Safety Report 5216295-0 (Version None)
Quarter: 2007Q1

REPORT INFORMATION
  Report Type: 
  Country: None (occurrence: None)
  Receive Date: 20070118
  Receipt Date: 20070103
  Transmission Date: 20070707
  Serious: Yes (Hospitalization)
  Sender: FDA-Public Use
  Company Number: 234305

PATIENT
  Age: 41 Year
  Sex: Female
  Weight: 65.8 kg

DRUGS (1)
  1. BEVACIZUMAB (BEVACIZUMAB) PWDR + SOLVENT, INFUSION SOLN, 100MG [Suspect]
     Indication: GLIOBLASTOMA MULTIFORME
     Dosage: 658 Q2W, INTRAVENOUS
     Route: 042
     Dates: start: 20061107, end: 20061219

REACTIONS (1)
  - CONVULSION [None]
